FAERS Safety Report 8265070-1 (Version None)
Quarter: 2012Q2

REPORT INFORMATION
  Report Type: 
  Country: None (occurrence: None)
  Receive Date: 20120406
  Receipt Date: 20120326
  Transmission Date: 20120825
  Serious: Yes (Death)
  Sender: FDA-Public Use
  Company Number: US-CELGENEUS-163-21880-11100956

PATIENT
  Sex: Male

DRUGS (15)
  1. VELCADE [Concomitant]
     Dosage: 1 MILLIGRAM/SQ. METER
     Route: 041
     Dates: start: 20090609
  2. ZOMETA [Concomitant]
     Dosage: 4 MILLIGRAM
     Route: 065
  3. IMMUNE GLOBULIN INTRAVENOUS (HUMAN) [Concomitant]
     Dosage: 40 GRAM
     Route: 041
  4. LISINOPRIL [Concomitant]
     Route: 065
  5. BACTRIM [Concomitant]
     Route: 065
  6. REVLIMID [Suspect]
     Indication: MULTIPLE MYELOMA
     Dosage: 25 MILLIGRAM
     Route: 048
     Dates: start: 20060701, end: 20060101
  7. VELCADE [Concomitant]
     Dosage: .7 MILLIGRAM/SQ. METER
     Route: 041
     Dates: start: 20090527
  8. DEXAMETHASONE TAB [Concomitant]
     Dosage: 20 MILLIGRAM
     Route: 065
     Dates: start: 20110128, end: 20110801
  9. DEXAMETHASONE TAB [Concomitant]
     Dosage: 40 MILLIGRAM
     Route: 065
     Dates: start: 20050901
  10. ACYCLOVIR [Concomitant]
     Dosage: 400 MILLIGRAM
     Route: 065
  11. DEXAMETHASONE TAB [Concomitant]
     Dosage: 20 MILLIGRAM
     Route: 065
     Dates: start: 20060301
  12. REVLIMID [Suspect]
     Dosage: 10 MILLIGRAM
     Route: 048
     Dates: start: 20110128, end: 20110901
  13. VELCADE [Concomitant]
     Dosage: 1 MILLIGRAM/SQ. METER
     Route: 041
     Dates: start: 20110128, end: 20110901
  14. COUMADIN [Concomitant]
     Indication: PULMONARY EMBOLISM
     Route: 065
  15. REVLIMID [Suspect]
     Dosage: 10 MILLIGRAM
     Route: 048
     Dates: start: 20101101

REACTIONS (2)
  - PNEUMONIA [None]
  - PARAESTHESIA [None]
